FAERS Safety Report 6111990-3 (Version None)
Quarter: 2009Q1

REPORT INFORMATION
  Report Type: 
  Country: None (occurrence: None)
  Receive Date: 20090311
  Receipt Date: 20090305
  Transmission Date: 20090719
  Serious: Yes (Other)
  Sender: FDA-Public Use
  Company Number: IT-ABBOTT-09P-083-0560706-00

PATIENT
  Sex: Male

DRUGS (1)
  1. VECLAM [Suspect]
     Indication: UPPER RESPIRATORY TRACT INFECTION
     Dosage: FREQUENCY 2 DAYS
     Route: 048
     Dates: start: 20090302, end: 20090305

REACTIONS (5)
  - DYSGEUSIA [None]
  - FAECES DISCOLOURED [None]
  - GASTROINTESTINAL PAIN [None]
  - PARAESTHESIA [None]
  - VERTIGO [None]
